FAERS Safety Report 6092098-2 (Version None)
Quarter: 2009Q1

REPORT INFORMATION
  Report Type: 
  Country: None (occurrence: None)
  Receive Date: 20090225
  Receipt Date: 20090212
  Transmission Date: 20090719
  Serious: Yes (Death)
  Sender: FDA-Public Use
  Company Number: JP-ABBOTT-09P-087-0558810-00

PATIENT
  Age: 82 Year
  Sex: Male

DRUGS (3)
  1. LEUPROLIDE ACETATE [Suspect]
     Indication: PROSTATE CANCER STAGE II
     Route: 058
     Dates: start: 20060510
  2. LEUPROLIDE ACETATE [Suspect]
     Dates: start: 20031022, end: 20060407
  3. CASODEX [Concomitant]
     Indication: PROSTATE CANCER STAGE II
     Route: 048

REACTIONS (2)
  - INJECTION SITE INDURATION [None]
  - PROSTATE CANCER [None]
